FAERS Safety Report 19135627 (Version 1)
Quarter: 2021Q2

REPORT INFORMATION
  Report Type: Spontaneous
  Country: FR (occurrence: FR)
  Receive Date: 20210414
  Receipt Date: 20210414
  Transmission Date: 20210717
  Serious: Yes (Hospitalization, Other)
  Sender: FDA-Public Use
  Company Number: FR-TAKEDA-2021TUS022881

PATIENT
  Age: 63 Year
  Sex: Male
  Weight: 99 kg

DRUGS (3)
  1. KIOVIG [Suspect]
     Active Substance: HUMAN IMMUNOGLOBULIN G
     Indication: GUILLAIN-BARRE SYNDROME
     Dosage: 30 GRAM
     Route: 042
     Dates: start: 20210108, end: 20210110
  2. KIOVIG [Suspect]
     Active Substance: HUMAN IMMUNOGLOBULIN G
     Dosage: 5 GRAM
     Route: 042
     Dates: start: 20210109, end: 20210109
  3. KIOVIG [Suspect]
     Active Substance: HUMAN IMMUNOGLOBULIN G
     Dosage: 5 GRAM
     Route: 042
     Dates: start: 20210108, end: 20210110

REACTIONS (2)
  - Thrombophlebitis superficial [Recovered/Resolved]
  - Administration site infection [Recovered/Resolved]

NARRATIVE: CASE EVENT DATE: 202101
